FAERS Safety Report 21044716 (Version 2)
Quarter: 2022Q3

REPORT INFORMATION
  Report Type: Spontaneous
  Country: US (occurrence: US)
  Receive Date: 20220705
  Receipt Date: 20220720
  Transmission Date: 20221027
  Serious: No
  Sender: FDA-Public Use
  Company Number: US-TAKEDA-2022TUS044282

PATIENT
  Age: 61 Year
  Sex: Male
  Weight: 83.447 kg

DRUGS (19)
  1. TRINTELLIX [Suspect]
     Active Substance: VORTIOXETINE HYDROBROMIDE
     Indication: Depression
     Dosage: 10 MILLIGRAM, QD
     Route: 048
     Dates: start: 20220527, end: 20220613
  2. TRINTELLIX [Suspect]
     Active Substance: VORTIOXETINE HYDROBROMIDE
     Indication: Anxiety
  3. TRINTELLIX [Suspect]
     Active Substance: VORTIOXETINE HYDROBROMIDE
     Indication: Affective disorder
  4. IRBESARTAN [Concomitant]
     Active Substance: IRBESARTAN
     Dosage: 75 MILLIGRAM, QD
     Route: 065
  5. IRBESARTAN [Concomitant]
     Active Substance: IRBESARTAN
     Dosage: 150 MILLIGRAM, QD
     Route: 065
  6. VITAMIN D2 [Concomitant]
     Active Substance: ERGOCALCIFEROL
     Dosage: UNK UNK, 1/WEEK
     Route: 065
  7. ELIQUIS [Concomitant]
     Active Substance: APIXABAN
     Dosage: 5 MILLIGRAM, BID
     Route: 065
  8. PROPAFENONE [Concomitant]
     Active Substance: PROPAFENONE
     Dosage: 225 MILLIGRAM, TID
     Route: 065
  9. COREG [Concomitant]
     Active Substance: CARVEDILOL
     Dosage: 12.5 MILLIGRAM, BID
     Route: 065
  10. AZATHIOPRINE [Concomitant]
     Active Substance: AZATHIOPRINE
     Dosage: 100 MILLIGRAM, QD
     Route: 065
  11. POTASSIUM [Concomitant]
     Active Substance: POTASSIUM
     Indication: Supplementation therapy
     Dosage: 10 MILLIEQUIVALENT, QD
     Route: 065
  12. TRELEGY ELLIPTA [Concomitant]
     Active Substance: FLUTICASONE FUROATE\UMECLIDINIUM BROMIDE\VILANTEROL TRIFENATATE
     Dosage: UNK UNK, QD
     Route: 065
  13. KLONOPIN [Concomitant]
     Active Substance: CLONAZEPAM
     Dosage: 0.5 MILLIGRAM, TID
     Route: 065
  14. ALLEGRA [Concomitant]
     Active Substance: FEXOFENADINE HYDROCHLORIDE
     Dosage: 180 MILLIGRAM, QD
     Route: 065
  15. ALBUTEROL [Concomitant]
     Active Substance: ALBUTEROL
     Dosage: 180 MICROGRAM, QD
     Route: 065
  16. LOFIBRA [Concomitant]
     Active Substance: FENOFIBRATE
     Dosage: 67 MILLIGRAM, QD
     Route: 065
  17. XYZAL [Concomitant]
     Active Substance: LEVOCETIRIZINE DIHYDROCHLORIDE
     Dosage: 5 MILLIGRAM, QD
     Route: 065
  18. DUONEB [Concomitant]
     Active Substance: ALBUTEROL SULFATE\IPRATROPIUM BROMIDE
     Dosage: UNK UNK, QD
     Route: 065
  19. APRISO [Concomitant]
     Active Substance: MESALAMINE
     Dosage: 0.375 GRAM, QID
     Route: 065

REACTIONS (2)
  - Tachycardia [Recovered/Resolved]
  - Blood pressure increased [Recovered/Resolved]

NARRATIVE: CASE EVENT DATE: 20220527
